FAERS Safety Report 11106973 (Version 1)
Quarter: 2015Q2

REPORT INFORMATION
  Report Type: Spontaneous
  Country: US (occurrence: None)
  Receive Date: 20150508
  Receipt Date: 20150508
  Transmission Date: 20150821
  Serious: Yes (Hospitalization, Other)
  Sender: FDA-Public Use
  Company Number: ES-ZYDUS-007909

PATIENT
  Age: 74 Year
  Sex: Female

DRUGS (1)
  1. DIPYRIDAMOLE. [Suspect]
     Active Substance: DIPYRIDAMOLE
     Indication: PRODUCT USED FOR UNKNOWN INDICATION

REACTIONS (10)
  - Nausea [None]
  - Vomiting [None]
  - Ophthalmoplegia [None]
  - Hypopituitarism [None]
  - Pituitary haemorrhage [None]
  - Headache [None]
  - Eyelid ptosis [None]
  - Malaise [None]
  - Hypotension [None]
  - Mydriasis [None]
